FAERS Safety Report 9088761 (Version 1)
Quarter: 2013Q1

REPORT INFORMATION
  Report Type: Report from Study
  Country: US (occurrence: US)
  Receive Date: 20130201
  Receipt Date: 20130201
  Transmission Date: 20140127
  Serious: No
  Sender: FDA-Public Use
  Company Number: US-ABBOTT-12P-163-1020684-00

PATIENT
  Age: 49 Year
  Sex: Female

DRUGS (5)
  1. HUMIRA [Suspect]
     Indication: CROHN^S DISEASE
     Dates: start: 20120911
  2. PRAVASTATIN [Concomitant]
     Indication: BLOOD CHOLESTEROL INCREASED
  3. PAXIL [Concomitant]
     Indication: ANXIETY
  4. ZYRTEC [Concomitant]
     Indication: HYPERSENSITIVITY
  5. LEVOTHYROXIN [Concomitant]
     Indication: HYPOTHYROIDISM
     Route: 048

REACTIONS (2)
  - Dermatitis psoriasiform [Not Recovered/Not Resolved]
  - Injection site urticaria [Recovered/Resolved]
